FAERS Safety Report 17943792 (Version 2)
Quarter: 2020Q3

REPORT INFORMATION
  Report Type: Report from Study
  Country: DE (occurrence: DE)
  Receive Date: 20200625
  Receipt Date: 20200817
  Transmission Date: 20201103
  Serious: Yes (Other)
  Sender: FDA-Public Use
  Company Number: DE-BEH-2020119210

PATIENT

DRUGS (1)
  1. HUMAN IMMUNOGLOBULIN (NON?COMPANY) [Suspect]
     Active Substance: HUMAN IMMUNOGLOBULIN G
     Indication: PRODUCT USED FOR UNKNOWN INDICATION
     Dosage: 1 GRAM PER KILOGRAM, QW
     Route: 064

REACTIONS (2)
  - Petechiae [Unknown]
  - Maternal exposure timing unspecified [Unknown]
